FAERS Safety Report 13284623 (Version 2)
Quarter: 2017Q1

REPORT INFORMATION
  Report Type: Spontaneous
  Country: CN (occurrence: CN)
  Receive Date: 20170301
  Receipt Date: 20170314
  Transmission Date: 20170428
  Serious: Yes (Other)
  Sender: FDA-Public Use
  Company Number: CN-BAYER-2017-034502

PATIENT

DRUGS (1)
  1. KOGENATE [Suspect]
     Active Substance: ANTIHEMOPHILIC FACTOR, HUMAN RECOMBINANT
     Indication: HAEMOPHILIA

REACTIONS (4)
  - Haemorrhage [None]
  - Anti factor VIII antibody positive [None]
  - Drug ineffective [None]
  - Knee arthroplasty [None]

NARRATIVE: CASE EVENT DATE: 201612
